FAERS Safety Report 12627857 (Version 1)
Quarter: 2016Q3

REPORT INFORMATION
  Report Type: Spontaneous
  Country: US (occurrence: US)
  Receive Date: 20160806
  Receipt Date: 20160806
  Transmission Date: 20161109
  Serious: No
  Sender: FDA-Public Use
  Company Number: US-ABBVIE-16P-163-1582485-00

PATIENT
  Sex: Female

DRUGS (2)
  1. VIEKIRA PAK [Suspect]
     Active Substance: DASABUVIR\OMBITASVIR\PARITAPREVIR\RITONAVIR
     Indication: HEPATITIS C
     Dosage: 3 TABLETS IN AM: 1 TABLET IN PM
     Route: 048
  2. RIBAVIRIN. [Suspect]
     Active Substance: RIBAVIRIN
     Indication: HEPATITIS C
     Dosage: 3 TABLETS IN AM: 2 TABLETS IN PM
     Route: 048

REACTIONS (12)
  - Constipation [Unknown]
  - Memory impairment [Unknown]
  - Nausea [Unknown]
  - Chills [Unknown]
  - Fatigue [Unknown]
  - Anxiety [Unknown]
  - Anaemia [Unknown]
  - Diarrhoea [Unknown]
  - Confusional state [Unknown]
  - Depression [Unknown]
  - Impaired work ability [Unknown]
  - Rash [Unknown]
